FAERS Safety Report 5050847-6 (Version None)
Quarter: 2006Q3

REPORT INFORMATION
  Report Type: 
  Country: None (occurrence: None)
  Receive Date: 20060710
  Receipt Date: 20060626
  Transmission Date: 20061208
  Serious: Yes (Hospitalization)
  Sender: FDA-Public Use
  Company Number: B0429577A

PATIENT
  Age: 58 Year
  Sex: Female
  Weight: 53.8873 kg

DRUGS (10)
  1. LANOXIN [Suspect]
     Dosage: YEARS
  2. TELITHROMYCIN (TELITHROMYCIN) [Suspect]
     Indication: BRONCHITIS ACUTE
  3. HYDROCHLOROTHIAZIDE [Concomitant]
  4. FOSINOPRIL SODIUM [Concomitant]
  5. PROGESTERONE [Concomitant]
  6. PAROXETINE HYDROCHLORIDE [Concomitant]
  7. OMEPRAZOLE [Concomitant]
  8. BUDESONIDE [Concomitant]
  9. TERBUTALINE [Concomitant]
  10. BISOPROLOL FUMARATE [Concomitant]

REACTIONS (12)
  - BLOOD CREATINE PHOSPHOKINASE MB INCREASED [None]
  - BLOOD CREATININE INCREASED [None]
  - BLOOD MAGNESIUM DECREASED [None]
  - BLOOD PRESSURE INCREASED [None]
  - DRUG INTERACTION [None]
  - HYPONATRAEMIA [None]
  - MALAISE [None]
  - ORTHOSTATIC HYPOTENSION [None]
  - SYNCOPE [None]
  - TACHYARRHYTHMIA [None]
  - THERAPEUTIC AGENT TOXICITY [None]
  - TROPONIN I INCREASED [None]
